FAERS Safety Report 24806075 (Version 1)
Quarter: 2025Q1

REPORT INFORMATION
  Report Type: Spontaneous
  Country: US (occurrence: None)
  Receive Date: 20250103
  Receipt Date: 20250103
  Transmission Date: 20250409
  Serious: Yes (Life-Threatening, Hospitalization)
  Sender: FDA-CTU
  Company Number: None

PATIENT
  Age: 83 Year
  Sex: Female
  Weight: 74.25 kg

DRUGS (9)
  1. LAMOTRIGINE [Suspect]
     Active Substance: LAMOTRIGINE
     Indication: Generalised tonic-clonic seizure
     Dosage: OTHER QUANTITY : 1 TABLET(S);?FREQUENCY : TWICE A DAY;?
     Route: 048
     Dates: start: 20241027, end: 20250102
  2. LAMOTRIGINE [Suspect]
     Active Substance: LAMOTRIGINE
     Indication: Dementia Alzheimer^s type
  3. LEVOTHYROXINE [Concomitant]
     Active Substance: LEVOTHYROXINE
  4. MEMANTINE [Concomitant]
     Active Substance: MEMANTINE
  5. CARBIDOPA\LEVODOPA [Concomitant]
     Active Substance: CARBIDOPA\LEVODOPA
  6. FUROSEMIDE [Concomitant]
     Active Substance: FUROSEMIDE
  7. ENALAPRIL [Concomitant]
     Active Substance: ENALAPRIL
  8. DONEPEZIL [Concomitant]
     Active Substance: DONEPEZIL
  9. ATORVASTATIN [Concomitant]
     Active Substance: ATORVASTATIN

REACTIONS (17)
  - Fatigue [None]
  - Photophobia [None]
  - Lethargy [None]
  - Influenza like illness [None]
  - Pain [None]
  - Moaning [None]
  - Agitation [None]
  - Dysphagia [None]
  - Increased upper airway secretion [None]
  - Salivary hypersecretion [None]
  - Choking [None]
  - Glassy eyes [None]
  - Lip erythema [None]
  - Lip ulceration [None]
  - Mouth ulceration [None]
  - Stevens-Johnson syndrome [None]
  - Red blood cell sedimentation rate increased [None]

NARRATIVE: CASE EVENT DATE: 20250102
